FAERS Safety Report 16855018 (Version 2)
Quarter: 2019Q3

REPORT INFORMATION
  Report Type: Spontaneous
  Country: CN (occurrence: CN)
  Receive Date: 20190926
  Receipt Date: 20190930
  Transmission Date: 20191005
  Serious: Yes (Other)
  Sender: FDA-Public Use
  Company Number: CN-JNJFOC-20190925782

PATIENT

DRUGS (2)
  1. IBUPROFEN. [Suspect]
     Active Substance: IBUPROFEN
     Indication: PRODUCT USED FOR UNKNOWN INDICATION
     Route: 065
  2. PARACETAMOL [Suspect]
     Active Substance: ACETAMINOPHEN
     Indication: PRODUCT USED FOR UNKNOWN INDICATION
     Route: 065

REACTIONS (13)
  - Adverse event [Unknown]
  - Liver injury [Unknown]
  - Gastrointestinal injury [Unknown]
  - Granulocyte count decreased [Unknown]
  - Vomiting [Unknown]
  - Abdominal distension [Unknown]
  - Neurological symptom [Unknown]
  - Blood disorder [Unknown]
  - Hepatorenal failure [Unknown]
  - Haematemesis [Unknown]
  - Nausea [Unknown]
  - Haematochezia [Unknown]
  - Hypersensitivity [Unknown]
